FAERS Safety Report 16164159 (Version 6)
Quarter: 2019Q3

REPORT INFORMATION
  Report Type: Report from Study
  Country: US (occurrence: US)
  Receive Date: 20190405
  Receipt Date: 20190715
  Transmission Date: 20191004
  Serious: Yes (Other)
  Sender: FDA-Public Use
  Company Number: US-JNJFOC-20190404391

PATIENT
  Age: 82 Year
  Sex: Female

DRUGS (21)
  1. BIOTIN [Concomitant]
     Active Substance: BIOTIN
  2. MAGNESIUM [Concomitant]
     Active Substance: MAGNESIUM
  3. VITAMIN D3 [Concomitant]
     Active Substance: CHOLECALCIFEROL
  4. ALLOPURINOL. [Concomitant]
     Active Substance: ALLOPURINOL
  5. AMITRIPTYLINE HCL [Concomitant]
     Active Substance: AMITRIPTYLINE
  6. LISINOPRIL. [Concomitant]
     Active Substance: LISINOPRIL
  7. IMBRUVICA [Suspect]
     Active Substance: IBRUTINIB
     Route: 048
     Dates: start: 20190321
  8. CALCIUM [Concomitant]
     Active Substance: CALCIUM
  9. IMBRUVICA [Suspect]
     Active Substance: IBRUTINIB
     Indication: CHRONIC LYMPHOCYTIC LEUKAEMIA
     Route: 048
     Dates: start: 20190319, end: 2019
  10. ELAVIL [Concomitant]
     Active Substance: AMITRIPTYLINE HYDROCHLORIDE
  11. VITAMIN D [Concomitant]
     Active Substance: VITAMIN D NOS
  12. MIRALAX [Concomitant]
     Active Substance: POLYETHYLENE GLYCOL 3350
  13. PRILOSEC [Concomitant]
     Active Substance: OMEPRAZOLE MAGNESIUM
  14. BACTRIM [Concomitant]
     Active Substance: SULFAMETHOXAZOLE\TRIMETHOPRIM
  15. IMBRUVICA [Suspect]
     Active Substance: IBRUTINIB
     Route: 065
     Dates: start: 2019
  16. IMBRUVICA [Suspect]
     Active Substance: IBRUTINIB
     Route: 048
  17. HYDROCHLOROTH [Concomitant]
     Active Substance: HYDROCHLOROTHIAZIDE
  18. NEURONTIN [Concomitant]
     Active Substance: GABAPENTIN
  19. MIRALACT [Concomitant]
  20. OMEPRAZOLE. [Concomitant]
     Active Substance: OMEPRAZOLE
  21. CLARITIN [Concomitant]
     Active Substance: LORATADINE

REACTIONS (10)
  - White blood cell count decreased [Unknown]
  - Malignant melanoma [Unknown]
  - Adverse event [Unknown]
  - Constipation [Not Recovered/Not Resolved]
  - Basal cell carcinoma [Unknown]
  - Oedema [Not Recovered/Not Resolved]
  - Urinary tract infection [Unknown]
  - Contusion [Not Recovered/Not Resolved]
  - Squamous cell carcinoma of skin [Unknown]
  - Fatigue [Not Recovered/Not Resolved]

NARRATIVE: CASE EVENT DATE: 201903
